FAERS Safety Report 9057913 (Version 2)
Quarter: 2013Q1

REPORT INFORMATION
  Report Type: Spontaneous
  Country: IT (occurrence: IT)
  Receive Date: 20130210
  Receipt Date: 20130318
  Transmission Date: 20140127
  Serious: Yes (Death, Hospitalization)
  Sender: FDA-Public Use
  Company Number: IT-TEVA-384495ISR

PATIENT
  Age: 67 None
  Sex: Male

DRUGS (3)
  1. TEMOZOLOMIDE [Suspect]
     Indication: GLIOBLASTOMA MULTIFORME
     Route: 048
     Dates: start: 20121206, end: 20130104
  2. SOLDESAM [Concomitant]
     Indication: ANAPHYLAXIS PROPHYLAXIS
     Dosage: 32 GTT DAILY; DEXAMETHASONE 0.2%
     Route: 048
     Dates: start: 20121103, end: 20130111
  3. NEXIUM [Concomitant]
     Indication: PROPHYLAXIS AGAINST GASTROINTESTINAL ULCER
     Dosage: 40 MILLIGRAM DAILY;
     Route: 048
     Dates: start: 20121103, end: 20130111

REACTIONS (2)
  - Staphylococcal sepsis [Fatal]
  - Hepatitis cholestatic [Not Recovered/Not Resolved]
